FAERS Safety Report 22527664 (Version 1)
Quarter: 2023Q2

REPORT INFORMATION
  Report Type: Report from Study
  Country: US (occurrence: US)
  Receive Date: 20230606
  Receipt Date: 20230606
  Transmission Date: 20230722
  Serious: Yes (Hospitalization)
  Sender: FDA-Public Use
  Company Number: US-002147023-NVSC2023US126207

PATIENT
  Age: 60 Year
  Sex: Female
  Weight: 77.5 kg

DRUGS (4)
  1. RYDAPT [Suspect]
     Active Substance: MIDOSTAURIN
     Indication: Acute myeloid leukaemia
     Dosage: 50 MG BID (2X/DAY) (DAYS 8-21)
     Route: 048
     Dates: start: 20230508, end: 20230513
  2. CYTARABINE [Suspect]
     Active Substance: CYTARABINE
     Indication: Acute myeloid leukaemia
     Dosage: 3820 MG 2X/DAY (DAY 1)
     Route: 042
     Dates: start: 20230501, end: 20230501
  3. CYTARABINE [Suspect]
     Active Substance: CYTARABINE
     Dosage: 3820 MG 2X/DAY
     Route: 042
     Dates: start: 20230503, end: 20230503
  4. CYTARABINE [Suspect]
     Active Substance: CYTARABINE
     Dosage: 3820 MG 2X/DAY
     Route: 042
     Dates: start: 20230505, end: 20230505

REACTIONS (1)
  - Gastrointestinal haemorrhage [Recovered/Resolved]

NARRATIVE: CASE EVENT DATE: 20230513
